FAERS Safety Report 13168058 (Version 3)
Quarter: 2017Q1

REPORT INFORMATION
  Report Type: Spontaneous
  Country: US (occurrence: US)
  Receive Date: 20170131
  Receipt Date: 20170227
  Transmission Date: 20170428
  Serious: Yes (Other)
  Sender: FDA-Public Use
  Company Number: US-JNJFOC-20170121907

PATIENT
  Age: 95 Year
  Sex: Male

DRUGS (2)
  1. IMODIUM A-D [Suspect]
     Active Substance: LOPERAMIDE HYDROCHLORIDE
     Indication: DIARRHOEA
     Route: 048
     Dates: start: 20170121, end: 20170121
  2. IMODIUM A-D [Suspect]
     Active Substance: LOPERAMIDE HYDROCHLORIDE
     Route: 048

REACTIONS (7)
  - Unresponsive to stimuli [Recovering/Resolving]
  - Respiratory rate increased [Unknown]
  - Product label issue [Unknown]
  - Drug ineffective [Unknown]
  - Dysphagia [Unknown]
  - Hypertension [Unknown]
  - Eating disorder [Unknown]

NARRATIVE: CASE EVENT DATE: 20170123
